FAERS Safety Report 18737170 (Version 5)
Quarter: 2022Q1

REPORT INFORMATION
  Report Type: Report from Study
  Country: BR (occurrence: BR)
  Receive Date: 20210113
  Receipt Date: 20220113
  Transmission Date: 20220423
  Serious: Yes (Other)
  Sender: FDA-Public Use
  Company Number: BR-UCBSA-2021000420

PATIENT
  Age: 42 Year
  Sex: Male
  Weight: 114 kg

DRUGS (15)
  1. CERTOLIZUMAB PEGOL [Suspect]
     Active Substance: CERTOLIZUMAB PEGOL
     Indication: Ankylosing spondylitis
     Dosage: 400 MILLIGRAM, EV 2 WEEKS(QOW)
     Route: 058
     Dates: start: 202008, end: 202011
  2. CERTOLIZUMAB PEGOL [Suspect]
     Active Substance: CERTOLIZUMAB PEGOL
     Dosage: 400 MILLIGRAM, MONTHLY (QM)
     Route: 058
     Dates: start: 2020
  3. AMOXICILLIN [Concomitant]
     Active Substance: AMOXICILLIN
     Indication: Product used for unknown indication
     Dosage: UNK
  4. CODEINE SULFATE;PARACETAMOL [Concomitant]
     Indication: Pain
     Dosage: AS NEEDED (PRN)
  5. CODEINE SULFATE;PARACETAMOL [Concomitant]
     Indication: Headache
  6. IBUPROFEN [Concomitant]
     Active Substance: IBUPROFEN
     Indication: Pain
     Dosage: UNK, AS NEEDED (PRN)
  7. IBUPROFEN [Concomitant]
     Active Substance: IBUPROFEN
     Indication: Headache
  8. IBUPROFEN [Concomitant]
     Active Substance: IBUPROFEN
     Indication: Pulpitis dental
  9. CELECOXIB [Concomitant]
     Active Substance: CELECOXIB
     Indication: Back pain
     Dosage: 1 DOSAGE FORM
     Route: 048
  10. BUTYLSCOPOLAMINE BROMIDE [Concomitant]
     Active Substance: BUTYLSCOPOLAMINE BROMIDE
     Indication: Abdominal pain upper
     Dosage: 1 DOSAGE FORM, 3X/DAY (TID)
     Route: 048
  11. SIMVASTATIN [Concomitant]
     Active Substance: SIMVASTATIN
     Indication: Blood triglycerides abnormal
     Dosage: 1 DOSAGE FORM, ONCE DAILY (QD)
     Route: 048
  12. ATENOLOL [Concomitant]
     Active Substance: ATENOLOL
     Indication: Hypertension
     Dosage: 1 DOSAGE FORM, ONCE DAILY (QD)
     Route: 048
  13. ENALAPRIL [Concomitant]
     Active Substance: ENALAPRIL
     Indication: Hypertension
     Dosage: 2 DOSAGE FORM, ONCE DAILY (QD)
     Route: 048
  14. BESILAPIN [Concomitant]
     Indication: Hypertension
     Dosage: 2 DOSAGE FORM, ONCE DAILY (QD)
     Route: 048
  15. ACETAMINOPHEN\TRAMADOL [Concomitant]
     Active Substance: ACETAMINOPHEN\TRAMADOL
     Indication: Hypertension
     Dosage: 1 DOSAGE FORM, ONCE DAILY (QD)
     Route: 048

REACTIONS (11)
  - Prostate infection [Recovered/Resolved]
  - Nephrolithiasis [Recovered/Resolved]
  - Urinary tract infection bacterial [Recovering/Resolving]
  - Urinary tract obstruction [Unknown]
  - Renal disorder [Recovering/Resolving]
  - Dental operation [Unknown]
  - Hypertension [Unknown]
  - Back pain [Recovered/Resolved]
  - Joint swelling [Recovering/Resolving]
  - Visual impairment [Unknown]
  - Blood triglycerides abnormal [Unknown]

NARRATIVE: CASE EVENT DATE: 20201201
